FAERS Safety Report 16509194 (Version 1)
Quarter: 2019Q3

REPORT INFORMATION
  Report Type: Spontaneous
  Country: US (occurrence: US)
  Receive Date: 20190701
  Receipt Date: 20190701
  Transmission Date: 20191004
  Serious: Yes (Other)
  Sender: FDA-Public Use
  Company Number: None

PATIENT
  Age: 73 Year
  Sex: Female
  Weight: 47 kg

DRUGS (1)
  1. FULVESTRANT 250 MG/5 ML [Suspect]
     Active Substance: FULVESTRANT
     Indication: BREAST CANCER METASTATIC
     Route: 030

REACTIONS (4)
  - Angioedema [None]
  - Stridor [None]
  - Swelling face [None]
  - Injection site urticaria [None]

NARRATIVE: CASE EVENT DATE: 20190629
